FAERS Safety Report 7826121-9 (Version None)
Quarter: 2011Q4

REPORT INFORMATION
  Report Type: 
  Country: None (occurrence: None)
  Receive Date: 20111019
  Receipt Date: 20111013
  Transmission Date: 20120403
  Serious: Yes (Death, Hospitalization)
  Sender: FDA-Public Use
  Company Number: US-CELGENEUS-163-21880-11081232

PATIENT
  Sex: Male
  Weight: 87.5 kg

DRUGS (40)
  1. BENDAMUSTINE [Suspect]
     Dosage: 90 MILLIGRAM/SQ. METER
     Route: 041
     Dates: start: 20110801, end: 20110802
  2. ACETAMINOPHEN [Concomitant]
     Dosage: 650 MILLIGRAM
     Route: 048
  3. IPRATROPIUM BROMIDE AND ALBUTEROL SULFATE [Concomitant]
     Dosage: 3 MILLILITER
     Route: 055
  4. LIDOCAINE [Concomitant]
     Dosage: 1 PERCENT
     Route: 065
  5. CALCIUM CHLORIDE [Concomitant]
     Route: 065
  6. PEPCID [Concomitant]
     Route: 065
  7. DEMEROL [Concomitant]
     Route: 065
  8. RITUXAN [Suspect]
     Dosage: 375 MILLIGRAM/SQ. METER
     Route: 041
     Dates: start: 20110801, end: 20110802
  9. ALBUTEROL [Concomitant]
     Dosage: 2.5 MILLIGRAM
     Route: 055
  10. SODIUM CHLORIDE [Concomitant]
     Dosage: 5ML/HR
     Route: 041
  11. SODIUM CHLORIDE [Concomitant]
     Dosage: 10 MILLILITER
     Route: 041
  12. LORAZEPAM [Concomitant]
     Indication: ANXIETY
     Dosage: 0.25-0.5MG
     Route: 041
  13. OXYGEN [Concomitant]
     Indication: HYPOXIA
     Dosage: 6 LITERS
     Route: 065
     Dates: start: 20110801
  14. NOVOLOG [Concomitant]
     Route: 058
  15. CIPROFLOXACIN [Concomitant]
     Route: 065
  16. EPINEPHRINE [Concomitant]
     Route: 065
  17. GLUCAGON [Concomitant]
     Dosage: 1 MILLIGRAM
     Route: 030
  18. PRILOSEC [Concomitant]
     Dosage: 20 MILLIGRAM
     Route: 048
  19. COUMADIN [Concomitant]
     Dosage: 2 MILLIGRAM
     Route: 048
  20. LASIX [Concomitant]
     Route: 065
  21. NITROGLYCERIN [Concomitant]
     Dosage: .4 MILLIGRAM
     Route: 060
     Dates: start: 20110801
  22. RENVELA [Concomitant]
     Dosage: 800 MILLIGRAM
     Route: 048
  23. ASPIRIN [Concomitant]
     Dosage: 81 MILLIGRAM
     Route: 048
  24. PLAVIX [Concomitant]
     Dosage: 75 MILLIGRAM
     Route: 048
  25. SODIUM CHLORIDE [Concomitant]
     Dosage: 250-500ML
     Route: 041
  26. SIMVASTATIN [Concomitant]
     Dosage: 20 MILLIGRAM
     Route: 048
  27. REVLIMID [Suspect]
     Route: 048
  28. FENTANYL [Concomitant]
     Dosage: 50MCG/ML
     Route: 041
  29. HEPARIN [Concomitant]
     Route: 065
  30. METHYLPREDNISOLONE [Concomitant]
     Route: 065
  31. SODIUM POLYSTYRENE [Concomitant]
     Route: 065
  32. ALLOPURINOL [Concomitant]
     Indication: PROPHYLAXIS
     Route: 048
     Dates: start: 20110726
  33. DURICEF [Suspect]
     Route: 065
  34. CALCIUM ACETATE [Concomitant]
     Dosage: 1334 MILLIGRAM
     Route: 048
  35. DEXTROSE [Concomitant]
     Dosage: 12.5-25G
     Route: 041
  36. FEBUXOSTAT [Concomitant]
     Dosage: 40 MILLIGRAM
     Route: 048
  37. LEVOPHED [Concomitant]
     Dosage: 64 MICROGRAM
     Route: 041
     Dates: start: 20110801, end: 20110807
  38. ONDANSETRON HCL [Concomitant]
     Dosage: 4 MILLIGRAM
     Route: 041
  39. ZYLOPRIM [Concomitant]
     Indication: PROPHYLAXIS
     Dosage: 200 MILLIGRAM
     Route: 065
     Dates: start: 20110726, end: 20110803
  40. BENADRYL [Concomitant]
     Route: 065

REACTIONS (3)
  - AORTIC STENOSIS [None]
  - CARDIAC FAILURE CHRONIC [None]
  - TUMOUR LYSIS SYNDROME [None]
